FAERS Safety Report 6316021-8 (Version None)
Quarter: 2009Q3

REPORT INFORMATION
  Report Type: 
  Country: None (occurrence: None)
  Receive Date: 20090820
  Receipt Date: 20090813
  Transmission Date: 20100115
  Serious: Yes (Hospitalization)
  Sender: FDA-Public Use
  Company Number: US-BRISTOL-MYERS SQUIBB COMPANY-14741748

PATIENT
  Age: 67 Year
  Sex: Female
  Weight: 61 kg

DRUGS (8)
  1. IXABEPILONE [Suspect]
     Indication: BREAST CANCER METASTATIC
     Dosage: DAYS 1,8 + 15; INTERRUPTED ON 27JUL09; STOPPED ON 05AUG09
     Route: 042
     Dates: start: 20080606, end: 20090720
  2. DIGOXIN [Concomitant]
     Indication: TACHYCARDIA
     Route: 048
     Dates: start: 20030101
  3. ZETIA [Concomitant]
     Indication: HYPERCHOLESTEROLAEMIA
     Route: 048
     Dates: start: 20070212
  4. AMBIEN CR [Concomitant]
     Indication: INSOMNIA
     Dosage: HS
     Route: 048
     Dates: start: 20070921
  5. LEXAPRO [Concomitant]
     Indication: DEPRESSION
     Route: 048
     Dates: start: 20070519
  6. NARCOTIC NOS [Concomitant]
     Indication: NEURALGIA
     Dosage: 1 DF= 1 TABS(10/325)
     Dates: start: 20090116
  7. MECLIZINE [Concomitant]
     Indication: DIZZINESS
     Route: 048
     Dates: start: 20090724
  8. PANTOPRAZOLE SODIUM [Concomitant]
     Indication: GASTROOESOPHAGEAL REFLUX DISEASE
     Route: 048
     Dates: start: 20070611

REACTIONS (4)
  - ANAEMIA [None]
  - ELECTROLYTE IMBALANCE [None]
  - NEUROPATHY PERIPHERAL [None]
  - URINARY TRACT INFECTION [None]
